FAERS Safety Report 8764959 (Version 2)
Quarter: 2012Q4

REPORT INFORMATION
  Report Type: 
  Country: DE (occurrence: JP)
  Receive Date: 20120903
  Receipt Date: 20120903
  Transmission Date: 20130627
  Serious: Yes (Hospitalization)
  Sender: FDA-Public Use
  Company Number: JP-BRISTOL-MYERS SQUIBB COMPANY-16222887

PATIENT
  Age: 77 Year
  Sex: Female

DRUGS (14)
  1. VOGLIBOSE [Suspect]
     Dosage: Interrupted on 10Aug201, restat on 15Aug2011
     Route: 048
  2. WARFARIN POTASSIUM [Suspect]
     Route: 048
  3. DIGOSIN [Concomitant]
  4. EBRANTIL [Concomitant]
     Route: 048
  5. ALEVIATIN [Concomitant]
  6. ETODOLAC [Concomitant]
     Route: 048
  7. FUROSEMIDE [Concomitant]
  8. ZANTAC [Concomitant]
  9. SPIRONOLACTONE [Concomitant]
     Route: 048
  10. JANUVIA [Concomitant]
     Route: 048
     Dates: start: 20110815
  11. AMARYL [Concomitant]
     Route: 048
     Dates: start: 20110820
  12. DIOVAN [Concomitant]
     Route: 048
     Dates: end: 20110924
  13. METGLUCO [Suspect]
     Indication: TYPE 2 DIABETES MELLITUS
     Dosage: 28Jun-12Jul11:250mg BID(15D)
13Jul-10Aug11:500mg BID(29D)
15Aug11-ong:250mg QD
     Route: 048
     Dates: start: 20110628
  14. DAONIL [Suspect]
     Route: 048
     Dates: end: 20110810

REACTIONS (3)
  - Diarrhoea [Recovered/Resolved]
  - Cerebral haemorrhage [Recovered/Resolved]
  - Hypoglycaemia [Recovered/Resolved]
